FAERS Safety Report 7637272-6 (Version None)
Quarter: 2011Q3

REPORT INFORMATION
  Report Type: 
  Country: None (occurrence: None)
  Receive Date: 20110726
  Receipt Date: 20110721
  Transmission Date: 20111222
  Serious: Yes (Death, Other)
  Sender: FDA-Public Use
  Company Number: ES-PFIZER INC-2011121810

PATIENT
  Age: 61 Year
  Sex: Male
  Weight: 64 kg

DRUGS (5)
  1. CAVERJECT [Suspect]
     Dosage: 10 UG, UNK
     Route: 017
     Dates: start: 20110529, end: 20110529
  2. CAVERJECT [Suspect]
     Dosage: 20 UG, SINGLE
     Route: 017
     Dates: start: 20091101, end: 20091101
  3. CAVERJECT [Suspect]
     Dosage: 20 UG, SINGLE
     Route: 017
     Dates: start: 20110101, end: 20110101
  4. BISOPROLOL FUMARATE [Concomitant]
     Indication: HYPERTENSION
     Dosage: UNK
     Route: 048
  5. IDAPTAN [Concomitant]
     Dosage: UNK
     Route: 048

REACTIONS (6)
  - PULMONARY HYPERTENSION [None]
  - SUBARACHNOID HAEMORRHAGE [None]
  - HYPERTENSION [None]
  - MALAISE [None]
  - HEADACHE [None]
  - NEPHROANGIOSCLEROSIS [None]
